FAERS Safety Report 16532578 (Version 1)
Quarter: 2019Q3

REPORT INFORMATION
  Report Type: Spontaneous
  Country: US (occurrence: US)
  Receive Date: 20190703
  Receipt Date: 20190703
  Transmission Date: 20191004
  Serious: Yes (Hospitalization)
  Sender: FDA-Public Use
  Company Number: None

PATIENT
  Age: 77 Year
  Sex: Female

DRUGS (9)
  1. TACROLIMUS. [Suspect]
     Active Substance: TACROLIMUS
     Indication: ORGAN TRANSPLANT
     Route: 048
     Dates: start: 20150609
  2. TACROLIMUS. [Suspect]
     Active Substance: TACROLIMUS
     Indication: TRANSPLANT
     Route: 048
     Dates: start: 20150609
  3. ATORVASTATIN [Concomitant]
     Active Substance: ATORVASTATIN
  4. MYCOPHENOLIC [Concomitant]
     Active Substance: MYCOPHENOLIC ACID
  5. AMPICILLIN [Concomitant]
     Active Substance: AMPICILLIN
  6. ELIQUIS [Concomitant]
     Active Substance: APIXABAN
  7. LOSARTAN POTASSIUM. [Concomitant]
     Active Substance: LOSARTAN POTASSIUM
  8. FUROSEMIDE. [Concomitant]
     Active Substance: FUROSEMIDE
  9. PANTOPRAZOLE [Concomitant]
     Active Substance: PANTOPRAZOLE

REACTIONS (3)
  - Nausea [None]
  - Thrombosis [None]
  - Diarrhoea [None]

NARRATIVE: CASE EVENT DATE: 20190621
